FAERS Safety Report 11709453 (Version 1)
Quarter: 2015Q4

REPORT INFORMATION
  Report Type: Spontaneous
  Country: US (occurrence: US)
  Receive Date: 20151104
  Receipt Date: 20151104
  Transmission Date: 20160304
  Serious: No
  Sender: FDA-Public Use
  Company Number: US-ELI_LILLY_AND_COMPANY-US201109002436

PATIENT
  Age: 72 Year
  Sex: Female

DRUGS (2)
  1. FORTEO [Suspect]
     Active Substance: TERIPARATIDE
     Dosage: 20 UG, QD
     Dates: start: 20110906, end: 20110909
  2. FORTEO [Suspect]
     Active Substance: TERIPARATIDE
     Indication: OSTEOPOROSIS
     Dosage: 20 UG, QD
     Dates: start: 20110831, end: 20110902

REACTIONS (10)
  - Feeling abnormal [Unknown]
  - Cold sweat [Unknown]
  - Middle insomnia [Unknown]
  - Nausea [Unknown]
  - Malaise [Unknown]
  - Paraesthesia [Unknown]
  - Intentional product misuse [Unknown]
  - Movement disorder [Unknown]
  - Blood pressure decreased [Unknown]
  - Headache [Unknown]

NARRATIVE: CASE EVENT DATE: 20110831
